FAERS Safety Report 8587659-2 (Version None)
Quarter: 2012Q3

REPORT INFORMATION
  Report Type: 
  Country: None (occurrence: None)
  Receive Date: 20120812
  Receipt Date: 20120730
  Transmission Date: 20120928
  Serious: No
  Sender: FDA-Public Use
  Company Number: US-009507513-1207USA013097

PATIENT

DRUGS (1)
  1. NOROXIN [Suspect]
     Dosage: 400 MG, BID

REACTIONS (4)
  - PRODUCT SOLUBILITY ABNORMAL [None]
  - NO ADVERSE EVENT [None]
  - WRONG TECHNIQUE IN DRUG USAGE PROCESS [None]
  - INCORRECT ROUTE OF DRUG ADMINISTRATION [None]
